FAERS Safety Report 21244431 (Version 2)
Quarter: 2022Q3

REPORT INFORMATION
  Report Type: Spontaneous
  Country: ES (occurrence: ES)
  Receive Date: 20220823
  Receipt Date: 20220907
  Transmission Date: 20221027
  Serious: Yes (Hospitalization, Congenital Anomaly)
  Sender: FDA-Public Use
  Company Number: ES-UCBSA-2022048769

PATIENT

DRUGS (7)
  1. LEVETIRACETAM [Suspect]
     Active Substance: LEVETIRACETAM
     Indication: Status epilepticus
     Dosage: 4000 MILLIGRAM
     Route: 064
  2. VIMPAT [Suspect]
     Active Substance: LACOSAMIDE
     Indication: Status epilepticus
     Dosage: 200 MILLIGRAM 12 HOURS
     Route: 064
  3. BRIVIACT [Suspect]
     Active Substance: BRIVARACETAM
     Indication: Status epilepticus
     Dosage: 100 MILLIGRAM, 2X/DAY (BID)
     Route: 064
  4. MIDAZOLAM HYDROCHLORIDE [Suspect]
     Active Substance: MIDAZOLAM HYDROCHLORIDE
     Indication: Product used for unknown indication
     Dosage: 12 MILLILITER HOURLY
     Route: 064
  5. VALPROIC ACID [Suspect]
     Active Substance: VALPROIC ACID
     Indication: Product used for unknown indication
     Dosage: 4800 MILLIGRAM ONCE DAILY (QD)
     Route: 064
  6. PERAMPANEL [Suspect]
     Active Substance: PERAMPANEL
     Indication: Product used for unknown indication
     Dosage: 12 MILLIGRAM
     Route: 064
  7. PROPOFOL [Suspect]
     Active Substance: PROPOFOL
     Indication: Product used for unknown indication
     Dosage: 15 MILLILTER HOURLY
     Route: 064

REACTIONS (5)
  - Patent ductus arteriosus [Unknown]
  - Maternal exposure during pregnancy [Unknown]
  - Intestinal atresia [Unknown]
  - Pulmonary haemorrhage [Unknown]
  - Coagulopathy [Unknown]
